FAERS Safety Report 5150282-6 (Version None)
Quarter: 2006Q4

REPORT INFORMATION
  Report Type: 
  Country: None (occurrence: None)
  Receive Date: 20061108
  Receipt Date: 20061026
  Transmission Date: 20070319
  Serious: Yes (Other)
  Sender: FDA-Public Use
  Company Number: GB-2006-032625

PATIENT
  Age: 40 Year
  Sex: Female

DRUGS (1)
  1. MIRENA [Suspect]
     Indication: DRUG USE FOR UNKNOWN INDICATION
     Dosage: 20 UG/DAY, CONT, INTRA-UTERINE
     Route: 015
     Dates: start: 20060526, end: 20060719

REACTIONS (5)
  - BLISTER [None]
  - DRUG INEFFECTIVE [None]
  - ECZEMA [None]
  - NO REACTION ON PREVIOUS EXPOSURE TO DRUG [None]
  - RASH PRURITIC [None]
